FAERS Safety Report 11132191 (Version 2)
Quarter: 2015Q2

REPORT INFORMATION
  Report Type: Spontaneous
  Country: BR (occurrence: BR)
  Receive Date: 20150522
  Receipt Date: 20150603
  Transmission Date: 20150821
  Serious: Yes (Hospitalization, Other)
  Sender: FDA-Public Use
  Company Number: BR-PFIZER INC-2015171626

PATIENT
  Age: 66 Year
  Sex: Female

DRUGS (4)
  1. LYRICA [Suspect]
     Active Substance: PREGABALIN
     Indication: FIBROMYALGIA
  2. DORMONID [Concomitant]
     Active Substance: MIDAZOLAM MALEATE
     Dosage: UNK
     Dates: start: 1994
  3. LYRICA [Suspect]
     Active Substance: PREGABALIN
     Indication: REPETITIVE STRAIN INJURY
  4. LYRICA [Suspect]
     Active Substance: PREGABALIN
     Indication: PAIN
     Dosage: 2 CAPSULES EVERY 12 HOURS
     Dates: start: 2011

REACTIONS (12)
  - Joint injury [Not Recovered/Not Resolved]
  - Feeling cold [Unknown]
  - Fall [Unknown]
  - Somnolence [Unknown]
  - Phlebitis [Unknown]
  - Swelling [Unknown]
  - Urticaria [Unknown]
  - Dysuria [Unknown]
  - Arthritis [Not Recovered/Not Resolved]
  - Fluid retention [Recovered/Resolved]
  - Gastrooesophageal reflux disease [Unknown]
  - Drug ineffective [Unknown]

NARRATIVE: CASE EVENT DATE: 2012
